FAERS Safety Report 13155745 (Version 1)
Quarter: 2017Q1

REPORT INFORMATION
  Report Type: Spontaneous
  Country: US (occurrence: US)
  Receive Date: 20170126
  Receipt Date: 20170126
  Transmission Date: 20170428
  Serious: No
  Sender: FDA-Public Use
  Company Number: US-ROCHE-1296841

PATIENT
  Age: 81 Year
  Sex: Female

DRUGS (2)
  1. VALIUM [Suspect]
     Active Substance: DIAZEPAM
     Indication: ANXIETY
     Route: 048
  2. VALIUM [Suspect]
     Active Substance: DIAZEPAM
     Dosage: CUT IN HALF
     Route: 048
     Dates: start: 20131020, end: 20131027

REACTIONS (5)
  - Dizziness [Recovered/Resolved]
  - Drug administration error [Unknown]
  - Sleep disorder [Recovered/Resolved]
  - Drug effect prolonged [Recovered/Resolved]
  - Product taste abnormal [Unknown]

NARRATIVE: CASE EVENT DATE: 20131020
